FAERS Safety Report 6470099-X (Version None)
Quarter: 2009Q4

REPORT INFORMATION
  Report Type: 
  Country: None (occurrence: None)
  Receive Date: 20091203
  Receipt Date: 20091125
  Transmission Date: 20100525
  Serious: Yes (Hospitalization)
  Sender: FDA-Public Use
  Company Number: ZA-WYE-G04996809

PATIENT
  Age: 45 Year
  Sex: Male

DRUGS (1)
  1. TYGACIL [Suspect]
     Dosage: 100MG LOADING DOSE THEN 50MG BID
     Route: 042
     Dates: start: 20091122, end: 20091124

REACTIONS (1)
  - MYOPATHY [None]
